FAERS Safety Report 20754761 (Version 5)
Quarter: 2022Q3

REPORT INFORMATION
  Report Type: Report from Study
  Country: US (occurrence: US)
  Receive Date: 20220427
  Receipt Date: 20220930
  Transmission Date: 20221026
  Serious: Yes (Other)
  Sender: FDA-Public Use
  Company Number: US-ABBVIE-21K-163-3942211-00

PATIENT
  Sex: Female

DRUGS (6)
  1. HUMIRA [Suspect]
     Active Substance: ADALIMUMAB
     Indication: Rheumatoid arthritis
     Route: 058
  2. HUMIRA [Suspect]
     Active Substance: ADALIMUMAB
     Dosage: CITRATE FREE
     Route: 058
     Dates: start: 202103, end: 202103
  3. HUMIRA [Suspect]
     Active Substance: ADALIMUMAB
     Route: 058
  4. HUMIRA [Suspect]
     Active Substance: ADALIMUMAB
     Route: 058
  5. PFIZER-BIONTECH COVID-19 VACCINE [Suspect]
     Active Substance: TOZINAMERAN
     Indication: COVID-19 immunisation
     Dosage: 1ST DOSE
     Route: 030
     Dates: start: 202102, end: 202102
  6. PFIZER-BIONTECH COVID-19 VACCINE [Suspect]
     Active Substance: TOZINAMERAN
     Indication: COVID-19 immunisation
     Dosage: 2ND DOSE
     Route: 030
     Dates: start: 202103, end: 202103

REACTIONS (23)
  - Gastric neoplasm [Recovering/Resolving]
  - Diverticulitis [Recovered/Resolved]
  - Haemorrhoids [Recovering/Resolving]
  - Accident [Recovering/Resolving]
  - Gastric disorder [Recovered/Resolved]
  - Depression [Recovering/Resolving]
  - Fatigue [Recovered/Resolved]
  - Oxygen saturation decreased [Recovered/Resolved]
  - Food intolerance [Recovering/Resolving]
  - Musculoskeletal stiffness [Recovered/Resolved]
  - Blood pressure increased [Recovered/Resolved]
  - Chronic obstructive pulmonary disease [Recovering/Resolving]
  - Pleural effusion [Recovering/Resolving]
  - Heart rate increased [Unknown]
  - COVID-19 [Recovered/Resolved]
  - Pain [Recovered/Resolved]
  - Chronic kidney disease [Recovered/Resolved]
  - Injection site pain [Recovered/Resolved]
  - Abdominal pain upper [Recovering/Resolving]
  - Fibromyalgia [Recovering/Resolving]
  - Hypertension [Recovered/Resolved]
  - Spinal fracture [Recovering/Resolving]
  - Back injury [Recovering/Resolving]

NARRATIVE: CASE EVENT DATE: 20070101
